FAERS Safety Report 6021518-4 (Version None)
Quarter: 2008Q4

REPORT INFORMATION
  Report Type: 
  Country: None (occurrence: None)
  Receive Date: 20081229
  Receipt Date: 20081217
  Transmission Date: 20090506
  Serious: Yes (Life-Threatening, Hospitalization)
  Sender: FDA-Public Use
  Company Number: ES-WYE-H07409308

PATIENT
  Age: 70 Year
  Sex: Female

DRUGS (3)
  1. TRANGOREX [Suspect]
     Indication: ATRIAL FIBRILLATION
     Dosage: UNSPECIFIED
     Route: 042
  2. AMIODARONE HCL [Suspect]
     Indication: ATRIAL FIBRILLATION
     Dosage: UNSPECIFIED
     Route: 048
  3. SINTROM [Concomitant]

REACTIONS (3)
  - ANAPHYLACTIC SHOCK [None]
  - COMA [None]
  - NONSPECIFIC REACTION [None]
